FAERS Safety Report 18876453 (Version 1)
Quarter: 2021Q1

REPORT INFORMATION
  Report Type: Spontaneous
  Country: CA (occurrence: CA)
  Receive Date: 20210210
  Receipt Date: 20210210
  Transmission Date: 20210420
  Serious: Yes (Hospitalization, Other)
  Sender: FDA-Public Use
  Company Number: CA-B.I. PHARMACEUTICALS,INC./RIDGEFIELD-2021-BI-075756

PATIENT
  Age: 69 Year
  Sex: Female

DRUGS (5)
  1. GLYBURIDE. [Concomitant]
     Active Substance: GLYBURIDE
     Indication: PRODUCT USED FOR UNKNOWN INDICATION
     Route: 065
  2. JARDIANCE [Suspect]
     Active Substance: EMPAGLIFLOZIN
     Indication: DIABETES MELLITUS
     Route: 065
  3. OZEMPIC [Suspect]
     Active Substance: SEMAGLUTIDE
     Indication: DIABETES MELLITUS
     Dosage: MULTIDOSE PREFILLED PEN DISPENSES 0.25MG OR 0.5MG DOSE
     Route: 058
  4. METFORMIN [Concomitant]
     Active Substance: METFORMIN HYDROCHLORIDE
     Indication: PRODUCT USED FOR UNKNOWN INDICATION
     Route: 065
  5. HUMULIN N [Concomitant]
     Active Substance: INSULIN HUMAN
     Indication: PRODUCT USED FOR UNKNOWN INDICATION
     Route: 065

REACTIONS (1)
  - Euglycaemic diabetic ketoacidosis [Unknown]
